FAERS Safety Report 5967857-4 (Version None)
Quarter: 2008Q4

REPORT INFORMATION
  Report Type: 
  Country: None (occurrence: None)
  Receive Date: 20081126
  Receipt Date: 20081124
  Transmission Date: 20090506
  Serious: Yes (Other)
  Sender: FDA-Public Use
  Company Number: NL-BRISTOL-MYERS SQUIBB COMPANY-14418941

PATIENT
  Age: 80 Year
  Sex: Male
  Weight: 80 kg

DRUGS (5)
  1. SELEKTINE TABS [Suspect]
     Dates: start: 20060913, end: 20081007
  2. METFORMIN HCL [Concomitant]
  3. TOLBUTAMIDE [Concomitant]
  4. ACETYLSALICYLIC ACID SRT [Concomitant]
  5. TEMAZEPAM [Concomitant]

REACTIONS (2)
  - TENDON RUPTURE [None]
  - TENDONITIS [None]
